FAERS Safety Report 8815813 (Version 1)
Quarter: 2012Q4

REPORT INFORMATION
  Report Type: 
  Country: US (occurrence: US)
  Receive Date: 20120928
  Receipt Date: 20120928
  Transmission Date: 20130627
  Serious: Yes (Other)
  Sender: FDA-Public Use
  Company Number: US-ASTRAZENECA-2012SE73151

PATIENT

DRUGS (5)
  1. SEROQUEL [Suspect]
     Indication: SCHIZOPHRENIA
     Route: 048
  2. NUVIGIL [Interacting]
     Indication: SCHIZOPHRENIA
  3. NUVIGIL [Interacting]
     Indication: SCHIZOPHRENIA
  4. NUVIGIL [Interacting]
     Indication: SCHIZOPHRENIA
  5. NUVIGIL [Interacting]
     Indication: SCHIZOPHRENIA

REACTIONS (2)
  - Drug interaction [Unknown]
  - Agitation [Unknown]
